FAERS Safety Report 9421006 (Version 1)
Quarter: 2013Q3

REPORT INFORMATION
  Report Type: Spontaneous
  Country: JP (occurrence: None)
  Receive Date: 20130723
  Receipt Date: 20130723
  Transmission Date: 20140515
  Serious: No
  Sender: FDA-Public Use
  Company Number: TCI2013A03951

PATIENT
  Sex: 0

DRUGS (1)
  1. LANSAP [Suspect]
     Route: 048
     Dates: start: 20130703

REACTIONS (1)
  - Vision blurred [None]
